FAERS Safety Report 11226210 (Version 1)
Quarter: 2015Q2

REPORT INFORMATION
  Report Type: Spontaneous
  Country: US (occurrence: US)
  Receive Date: 20150629
  Receipt Date: 20150629
  Transmission Date: 20150821
  Serious: No
  Sender: FDA-Public Use
  Company Number: US-MYLANLABS-2015M1011167

PATIENT
  Age: 77 Year
  Sex: Male

DRUGS (2)
  1. CLOZAPINE TABLETS, USP [Suspect]
     Active Substance: CLOZAPINE
     Indication: DEPRESSION
     Dosage: 50 MG, HS
     Route: 048
  2. CLOZAPINE TABLETS, USP [Suspect]
     Active Substance: CLOZAPINE
     Indication: OFF LABEL USE

REACTIONS (1)
  - Eosinophil count decreased [Not Recovered/Not Resolved]

NARRATIVE: CASE EVENT DATE: 20150318
